FAERS Safety Report 9227485 (Version 1)
Quarter: 2013Q2

REPORT INFORMATION
  Report Type: Spontaneous
  Country: US (occurrence: None)
  Receive Date: 20130411
  Receipt Date: 20130411
  Transmission Date: 20140414
  Serious: Yes (Hospitalization)
  Sender: FDA-Public Use
  Company Number: None

PATIENT
  Age: 88 Year
  Sex: Female
  Weight: 75 kg

DRUGS (10)
  1. PLAVIX [Suspect]
     Indication: CEREBROVASCULAR ACCIDENT
     Dosage: CHRONIC?75MG DAILY PER G-TUBE
  2. ASA [Suspect]
     Dosage: CHRONIC ?81MG DAILY PER G-TUBE
  3. LISINOPRIL [Concomitant]
  4. ZOLOFT [Concomitant]
  5. OCULAR [Concomitant]
  6. IRON SULFATE [Concomitant]
  7. HYDRALAZINE [Concomitant]
  8. LIPITOR [Concomitant]
  9. DULCOLAX [Concomitant]
  10. MIRALAX [Concomitant]

REACTIONS (3)
  - Anaemia [None]
  - Respiratory distress [None]
  - Epistaxis [None]
